FAERS Safety Report 21683992 (Version 1)
Quarter: 2022Q4

REPORT INFORMATION
  Report Type: Report from Study
  Country: RU (occurrence: RU)
  Receive Date: 20221205
  Receipt Date: 20221205
  Transmission Date: 20230113
  Serious: Yes (Hospitalization)
  Sender: FDA-Public Use
  Company Number: RU-JNJFOC-20221158104

PATIENT
  Age: 41 Year
  Sex: Female
  Weight: 55 kg

DRUGS (5)
  1. ERDAFITINIB [Suspect]
     Active Substance: ERDAFITINIB
     Indication: Breast cancer metastatic
     Route: 048
     Dates: start: 20221024, end: 20221122
  2. URSODIOL [Concomitant]
     Active Substance: URSODIOL
     Route: 048
     Dates: start: 20221122
  3. BICYCLOL [Concomitant]
     Active Substance: BICYCLOL
     Route: 048
     Dates: start: 20221122
  4. ADEMETIONINE [Concomitant]
     Active Substance: ADEMETIONINE
     Route: 042
     Dates: start: 20221123
  5. PREDNISONE [Concomitant]
     Active Substance: PREDNISONE
     Dosage: 1 MG/KG
     Route: 048
     Dates: start: 20221123

REACTIONS (1)
  - Hepatotoxicity [Not Recovered/Not Resolved]

NARRATIVE: CASE EVENT DATE: 20221118
